FAERS Safety Report 4455139-1 (Version None)
Quarter: 2004Q3

REPORT INFORMATION
  Report Type: 
  Country: None (occurrence: None)
  Receive Date: 20040907
  Receipt Date: 20040827
  Transmission Date: 20050211
  Serious: Yes (Hospitalization)
  Sender: FDA-Public Use
  Company Number: CH-GLAXOSMITHKLINE-B0344101A

PATIENT
  Age: 70 Year
  Sex: Female
  Weight: 110 kg

DRUGS (5)
  1. AMOXICILLIN AND CLAVULANATE POTASSIUM [Suspect]
     Indication: BACTERIAL INFECTION
     Dosage: 3.6G PER DAY
     Route: 042
     Dates: start: 20040418, end: 20040422
  2. GEMZAR [Suspect]
     Indication: CARCINOMA IN SITU
     Dosage: 1600MG PER DAY
     Route: 042
     Dates: start: 20040308, end: 20040315
  3. CARBOPLATIN [Suspect]
     Indication: CARCINOMA IN SITU
     Dosage: 550MG PER DAY
     Route: 042
  4. ACETAMINOPHEN [Suspect]
     Indication: PAIN
     Dosage: 1G THREE TIMES PER DAY
     Route: 048
     Dates: start: 20040414, end: 20040417
  5. PERFALGAN [Suspect]
     Indication: PAIN
     Dosage: 1G FOUR TIMES PER DAY
     Route: 042
     Dates: start: 20040418, end: 20040420

REACTIONS (10)
  - ALANINE AMINOTRANSFERASE INCREASED [None]
  - ASPARTATE AMINOTRANSFERASE INCREASED [None]
  - BILIRUBIN CONJUGATED INCREASED [None]
  - BLOOD ALBUMIN DECREASED [None]
  - BLOOD ALKALINE PHOSPHATASE INCREASED [None]
  - BLOOD BILIRUBIN INCREASED [None]
  - BLOOD LACTATE DEHYDROGENASE INCREASED [None]
  - GAMMA-GLUTAMYLTRANSFERASE INCREASED [None]
  - HEPATITIS CHOLESTATIC [None]
  - PROTHROMBIN TIME PROLONGED [None]
